FAERS Safety Report 13092036 (Version 2)
Quarter: 2017Q1

REPORT INFORMATION
  Report Type: Report from Study
  Country: US (occurrence: US)
  Receive Date: 20170106
  Receipt Date: 20170113
  Transmission Date: 20170428
  Serious: Yes (Death, Other)
  Sender: FDA-Public Use
  Company Number: US-ROCHE-1875910

PATIENT
  Age: 94 Year
  Sex: Female

DRUGS (1)
  1. LUCENTIS [Suspect]
     Active Substance: RANIBIZUMAB
     Indication: MACULAR DEGENERATION
     Dosage: 1 EVERY 4 TO 6 WEEKS
     Route: 050

REACTIONS (2)
  - Renal cancer [Unknown]
  - Death [Fatal]
